FAERS Safety Report 13921182 (Version 1)
Quarter: 2017Q3

REPORT INFORMATION
  Report Type: Spontaneous
  Country: JP (occurrence: JP)
  Receive Date: 20170830
  Receipt Date: 20170830
  Transmission Date: 20171127
  Serious: Yes (Death)
  Sender: FDA-Public Use
  Company Number: JP-ACTELION-A-CH2017-158667

PATIENT
  Age: 73 Year
  Sex: Female

DRUGS (4)
  1. VENTAVIS [Concomitant]
     Active Substance: ILOPROST
  2. OPSUMIT [Suspect]
     Active Substance: MACITENTAN
     Indication: PULMONARY ARTERIAL HYPERTENSION
     Dosage: 10 MG, QD
     Route: 048
     Dates: start: 20170530, end: 201708
  3. OXYGEN. [Concomitant]
     Active Substance: OXYGEN
  4. ADEMPAS [Concomitant]
     Active Substance: RIOCIGUAT

REACTIONS (2)
  - Left ventricular failure [Fatal]
  - Concomitant disease aggravated [Fatal]

NARRATIVE: CASE EVENT DATE: 20170802
